FAERS Safety Report 4575644-7 (Version None)
Quarter: 2005Q1

REPORT INFORMATION
  Report Type: 
  Country: None (occurrence: None)
  Receive Date: 20050209
  Receipt Date: 20050128
  Transmission Date: 20050727
  Serious: Yes (Hospitalization)
  Sender: FDA-Public Use
  Company Number: AU-GLAXOSMITHKLINE-B0370165A

PATIENT
  Age: 35 Year
  Sex: Female

DRUGS (3)
  1. IMIGRAN [Suspect]
     Route: 058
  2. IMIGRAN [Suspect]
     Dosage: 100MG AS REQUIRED
     Route: 048
  3. ORAL CONTRACEPTIVE (UNSPECIFIED) [Concomitant]

REACTIONS (6)
  - BENIGN INTRACRANIAL HYPERTENSION [None]
  - DIPLOPIA [None]
  - HEADACHE [None]
  - PAPILLOEDEMA [None]
  - SCOTOMA [None]
  - VISUAL FIELD DEFECT [None]
